FAERS Safety Report 9940815 (Version 2)
Quarter: 2014Q1

REPORT INFORMATION
  Report Type: Spontaneous
  Country: US (occurrence: US)
  Receive Date: 20140303
  Receipt Date: 20140303
  Transmission Date: 20141002
  Serious: No
  Sender: FDA-Public Use
  Company Number: US-MYLANLABS-2013S1027786

PATIENT
  Age: 65 Year
  Sex: Female
  Weight: 86.18 kg

DRUGS (1)
  1. MONTELUKAST SODIUM TABLETS [Suspect]
     Indication: ASTHMA
     Route: 048
     Dates: start: 201308

REACTIONS (1)
  - Rash generalised [Not Recovered/Not Resolved]
